FAERS Safety Report 6800456-0 (Version None)
Quarter: 2010Q2

REPORT INFORMATION
  Report Type: 
  Country: None (occurrence: None)
  Receive Date: 20100629
  Receipt Date: 20100622
  Transmission Date: 20101027
  Serious: No
  Sender: FDA-Public Use
  Company Number: US-BIOGENIDEC-2010BI018576

PATIENT
  Sex: Female

DRUGS (1)
  1. TYSABRI [Suspect]
     Indication: MULTIPLE SCLEROSIS
     Route: 042
     Dates: start: 20100322, end: 20100322

REACTIONS (9)
  - ADVERSE DRUG REACTION [None]
  - ASTHENIA [None]
  - COUGH [None]
  - DEVICE OCCLUSION [None]
  - DRUG HYPERSENSITIVITY [None]
  - FEELING ABNORMAL [None]
  - PULMONARY OEDEMA [None]
  - RASH [None]
  - UPPER RESPIRATORY TRACT INFECTION [None]
